FAERS Safety Report 16624375 (Version 1)
Quarter: 2019Q3

REPORT INFORMATION
  Report Type: Report from Study
  Country: None (occurrence: LB)
  Receive Date: 20190724
  Receipt Date: 20190724
  Transmission Date: 20191004
  Serious: Yes (Hospitalization)
  Sender: FDA-Public Use
  Company Number: LB-ABBVIE-19K-093-2864126-00

PATIENT
  Sex: Male
  Weight: 65 kg

DRUGS (3)
  1. HUMIRA [Suspect]
     Active Substance: ADALIMUMAB
     Route: 058
     Dates: start: 201901, end: 201907
  2. HUMIRA [Suspect]
     Active Substance: ADALIMUMAB
     Dosage: 80 MG LOADING DOSE
     Route: 058
     Dates: start: 201812, end: 201812
  3. HUMIRA [Suspect]
     Active Substance: ADALIMUMAB
     Indication: CROHN^S DISEASE
     Dosage: 160 MG LOADING DOSE
     Route: 058
     Dates: start: 201812, end: 201812

REACTIONS (1)
  - Blood iron decreased [Recovered/Resolved]

NARRATIVE: CASE EVENT DATE: 20190717
